FAERS Safety Report 5424989-7 (Version None)
Quarter: 2007Q3

REPORT INFORMATION
  Report Type: 
  Country: None (occurrence: None)
  Receive Date: 20070824
  Receipt Date: 20070817
  Transmission Date: 20080115
  Serious: Yes (Life-Threatening)
  Sender: FDA-Public Use
  Company Number: B0484461A

PATIENT
  Age: 42 Year
  Sex: Female
  Weight: 93 kg

DRUGS (5)
  1. LITHIUM CARBONATE [Suspect]
     Indication: BIPOLAR DISORDER
     Dosage: 1200MG PER DAY
     Route: 048
  2. ABILIFY [Suspect]
     Indication: BIPOLAR DISORDER
     Dosage: 15MG PER DAY
     Route: 048
     Dates: end: 20070712
  3. PENICILLIN G [Suspect]
     Indication: PHARYNGITIS
     Dosage: 250MG FOUR TIMES PER DAY
     Route: 048
     Dates: start: 20070711, end: 20070716
  4. RISPERIDONE [Concomitant]
     Indication: EXTRAPYRAMIDAL DISORDER
  5. ANTIHISTAMINES [Concomitant]

REACTIONS (7)
  - DRUG INTERACTION [None]
  - DYSARTHRIA [None]
  - FATIGUE [None]
  - JOINT STIFFNESS [None]
  - MUSCULOSKELETAL STIFFNESS [None]
  - NEUROLEPTIC MALIGNANT SYNDROME [None]
  - PYREXIA [None]
